APPROVED DRUG PRODUCT: CLOTIC
Active Ingredient: CLOTRIMAZOLE
Strength: 1%
Dosage Form/Route: SOLUTION/DROPS;OTIC
Application: N217628 | Product #001
Applicant: CARWIN PHARMACEUTICAL ASSOCIATES LLC
Approved: Sep 26, 2025 | RLD: Yes | RS: Yes | Type: RX

PATENTS:
Patent 12246006 | Expires: May 26, 2042

EXCLUSIVITY:
Code: NP | Date: Sep 26, 2028
Code: GAIN | Date: Sep 26, 2033